FAERS Safety Report 18462812 (Version 1)
Quarter: 2020Q4

REPORT INFORMATION
  Report Type: Spontaneous
  Country: GR (occurrence: GR)
  Receive Date: 20201104
  Receipt Date: 20201104
  Transmission Date: 20210114
  Serious: Yes (Other)
  Sender: FDA-Public Use
  Company Number: GR-009507513-2011GRC001063

PATIENT
  Age: 4 Year
  Sex: Male
  Weight: 13.5 kg

DRUGS (5)
  1. PROPOFOL. [Concomitant]
     Active Substance: PROPOFOL
  2. BRIDION [Suspect]
     Active Substance: SUGAMMADEX
     Indication: HYPOTONIA
     Dosage: 26 MILLIGRAM, ONCE
     Route: 042
     Dates: start: 20200918, end: 20200918
  3. ROCURONIUM BROMIDE. [Concomitant]
     Active Substance: ROCURONIUM BROMIDE
  4. ACETAMINOPHEN. [Concomitant]
     Active Substance: ACETAMINOPHEN
  5. FENTANYL. [Concomitant]
     Active Substance: FENTANYL

REACTIONS (3)
  - Bradycardia [Recovered/Resolved]
  - Bronchospasm [Recovered/Resolved]
  - Oxygen saturation decreased [Recovered/Resolved]

NARRATIVE: CASE EVENT DATE: 20200918
